FAERS Safety Report 4518924-3 (Version None)
Quarter: 2004Q4

REPORT INFORMATION
  Report Type: 
  Country: None (occurrence: None)
  Receive Date: 20041203
  Receipt Date: 20041203
  Transmission Date: 20050328
  Serious: Yes (Hospitalization)
  Sender: FDA-Public Use
  Company Number: None

PATIENT
  Age: 73 Year
  Sex: Female
  Weight: 47.6277 kg

DRUGS (2)
  1. VIOXX [Suspect]
     Indication: ARTHRITIS
     Dosage: 25 MG DAILY
     Dates: start: 20030908, end: 20041003
  2. VIOXX [Suspect]
     Dosage: 12 MG IN HOSP.

REACTIONS (1)
  - CARDIAC FAILURE CONGESTIVE [None]
